FAERS Safety Report 7077704-8 (Version None)
Quarter: 2010Q4

REPORT INFORMATION
  Report Type: 
  Country: None (occurrence: None)
  Receive Date: 20101101
  Receipt Date: 20101020
  Transmission Date: 20110411
  Serious: Yes (Hospitalization)
  Sender: FDA-Public Use
  Company Number: US-ELI_LILLY_AND_COMPANY-US201007005364

PATIENT
  Sex: Female

DRUGS (14)
  1. FORTEO [Suspect]
     Dosage: 20 UG, DAILY (1/D)
     Route: 065
     Dates: start: 20100805
  2. PROTONIX [Concomitant]
     Dosage: UNK, UNKNOWN
     Route: 065
  3. ADVAIR DISKUS 100/50 [Concomitant]
     Dosage: UNK, UNKNOWN
     Route: 065
  4. ATIVAN [Concomitant]
     Dosage: UNK, UNKNOWN
     Route: 065
  5. NEXIUM [Concomitant]
     Dosage: UNK, UNKNOWN
     Route: 065
  6. BYSTOLIC [Concomitant]
     Dosage: UNK, UNKNOWN
     Route: 065
  7. FORTICAL /00371903/ [Concomitant]
     Dosage: UNK, UNKNOWN
     Route: 065
  8. ULTRAM [Concomitant]
     Dosage: UNK, UNKNOWN
     Route: 065
  9. FENTANYL CITRATE [Concomitant]
     Dosage: UNK, UNKNOWN
     Route: 065
  10. PERCOCET [Concomitant]
     Dosage: UNK, UNKNOWN
     Route: 065
  11. NORCO [Concomitant]
     Dosage: UNK, UNKNOWN
     Route: 065
  12. SIMVASTATIN [Concomitant]
     Dosage: UNK, UNKNOWN
     Route: 065
  13. MIRAPEX [Concomitant]
     Dosage: UNK, UNKNOWN
     Route: 065
  14. PROVENTIL /USA/ [Concomitant]

REACTIONS (8)
  - DRUG DOSE OMISSION [None]
  - HYPOKINESIA [None]
  - INJECTION SITE HAEMORRHAGE [None]
  - INJECTION SITE PAIN [None]
  - INJURY ASSOCIATED WITH DEVICE [None]
  - MENTAL STATUS CHANGES [None]
  - PAIN [None]
  - PNEUMONIA [None]
